FAERS Safety Report 8770225 (Version 1)
Quarter: 2012Q4

REPORT INFORMATION
  Report Type: 
  Country: US (occurrence: US)
  Receive Date: 20120906
  Receipt Date: 20120906
  Transmission Date: 20130627
  Serious: No
  Sender: FDA-Public Use
  Company Number: US-B.I. PHARMACEUTICALS,INC./RIDGEFIELD-2012-BP-21320BP

PATIENT
  Age: 62 Year
  Sex: Female
  Weight: 68 kg

DRUGS (15)
  1. SPIRIVA [Suspect]
     Indication: ASTHMA
     Dosage: 18 mcg
     Route: 055
     Dates: start: 201205
  2. PREMARIN [Concomitant]
     Indication: HORMONE REPLACEMENT THERAPY
     Dosage: 0.065 mg
     Route: 048
     Dates: start: 1979
  3. EFFEXOR XL [Concomitant]
     Indication: DEPRESSION
     Dosage: 150 mg
     Route: 048
     Dates: start: 2003
  4. EFFEXOR XL [Concomitant]
     Indication: POST-TRAUMATIC STRESS DISORDER
  5. LORTAB [Concomitant]
     Indication: NECK PAIN
     Route: 048
     Dates: start: 2002
  6. LORTAB [Concomitant]
     Indication: MUSCULOSKELETAL PAIN
  7. LORTAB [Concomitant]
     Indication: PAIN IN EXTREMITY
  8. SOMA [Concomitant]
     Indication: NECK PAIN
     Dosage: 600 mg
     Route: 048
     Dates: start: 2005
  9. SOMA [Concomitant]
     Indication: BACK PAIN
  10. SOMA [Concomitant]
     Indication: PAIN IN EXTREMITY
  11. VALIUM [Concomitant]
     Indication: MUSCLE SPASMS
     Dosage: 40 mg
     Route: 048
     Dates: start: 2007
  12. WELLBUTRIN [Concomitant]
     Indication: DEPRESSION
     Dosage: 150 mg
     Route: 048
     Dates: start: 2003
  13. WELLBUTRIN [Concomitant]
     Indication: POST-TRAUMATIC STRESS DISORDER
  14. ATIVAN [Concomitant]
     Indication: ANXIETY
     Dosage: 0.5 mg
     Route: 048
     Dates: start: 2002
  15. HYDROCHLOROTHIAZIDE [Concomitant]
     Indication: NEPHROLITHIASIS
     Dosage: 25 mg
     Route: 048
     Dates: start: 1999

REACTIONS (1)
  - Bronchitis [Not Recovered/Not Resolved]
